FAERS Safety Report 4950028-8 (Version None)
Quarter: 2006Q1

REPORT INFORMATION
  Report Type: 
  Country: None (occurrence: None)
  Receive Date: 20060315
  Receipt Date: 20060224
  Transmission Date: 20060701
  Serious: Yes (Hospitalization)
  Sender: FDA-Public Use
  Company Number: FR_050907048

PATIENT
  Age: 66 Year
  Sex: Male
  Weight: 74 kg

DRUGS (3)
  1. ALIMTA [Suspect]
     Indication: PERITONEAL MESOTHELIOMA MALIGNANT
     Dosage: 720 MG, OTHER, INTRAVENOUS
     Route: 042
     Dates: start: 20050330
  2. VITAMIN B COMPLEX CAP [Concomitant]
  3. SPECIAFOLDINE (FOLIC ACID) [Concomitant]

REACTIONS (9)
  - CHILLS [None]
  - CYTOLYTIC HEPATITIS [None]
  - HEPATITIS [None]
  - HEPATITIS A ANTIBODY POSITIVE [None]
  - HEPATITIS CHOLESTATIC [None]
  - HERPES SIMPLEX SEROLOGY POSITIVE [None]
  - JAUNDICE [None]
  - NEUTROPENIA [None]
  - PYREXIA [None]
